FAERS Safety Report 20192851 (Version 2)
Quarter: 2021Q4

REPORT INFORMATION
  Report Type: Spontaneous
  Country: US (occurrence: US)
  Receive Date: 20211216
  Receipt Date: 20211222
  Transmission Date: 20220303
  Serious: Yes (Death, Other)
  Sender: FDA-Public Use
  Company Number: US-009507513-2112USA004187

PATIENT
  Age: 71 Year
  Sex: Male
  Weight: 63.4 kg

DRUGS (18)
  1. KEYTRUDA [Suspect]
     Active Substance: PEMBROLIZUMAB
     Indication: Oesophageal adenocarcinoma
     Dosage: 200 MILLIGRAM, ONCE A MONTH
     Route: 042
     Dates: start: 20170626, end: 20190311
  2. KEYTRUDA [Suspect]
     Active Substance: PEMBROLIZUMAB
     Dosage: 200 MILLIGRAM, ONCE A MONTH
     Route: 042
     Dates: end: 20210408
  3. ATIVAN [Concomitant]
     Active Substance: LORAZEPAM
  4. CARAFATE [Concomitant]
     Active Substance: SUCRALFATE
  5. COLCHICINE [Concomitant]
     Active Substance: COLCHICINE
  6. CEFIXIME [Concomitant]
     Active Substance: CEFIXIME
  7. MORNIFLUMATE [Concomitant]
     Active Substance: MORNIFLUMATE
  8. FOLATE SODIUM [Concomitant]
     Active Substance: FOLATE SODIUM
  9. MORPHINE [Concomitant]
     Active Substance: MORPHINE
     Dosage: IMMEDIATE RELEASE
  10. MUCINEX [Concomitant]
     Active Substance: GUAIFENESIN
  11. NEURONTIN [Concomitant]
     Active Substance: GABAPENTIN
  12. PEPCID [Concomitant]
     Active Substance: FAMOTIDINE
  13. PROSCAR [Concomitant]
     Active Substance: FINASTERIDE
  14. SINGULAIR [Concomitant]
     Active Substance: MONTELUKAST SODIUM
  15. SYMBICORT [Concomitant]
     Active Substance: BUDESONIDE\FORMOTEROL FUMARATE DIHYDRATE
  16. TOPROL XL [Concomitant]
     Active Substance: METOPROLOL SUCCINATE
  17. TUMS EX [Concomitant]
     Active Substance: CALCIUM CARBONATE
  18. ZYLOPRIM [Concomitant]
     Active Substance: ALLOPURINOL

REACTIONS (4)
  - Colon cancer metastatic [Fatal]
  - Malignant neoplasm progression [Unknown]
  - Osteonecrosis of jaw [Unknown]
  - Inappropriate schedule of product administration [Unknown]

NARRATIVE: CASE EVENT DATE: 20170626
